FAERS Safety Report 7342290-1 (Version None)
Quarter: 2011Q1

REPORT INFORMATION
  Report Type: 
  Country: None (occurrence: None)
  Receive Date: 20110310
  Receipt Date: 20110228
  Transmission Date: 20110831
  Serious: No
  Sender: FDA-Public Use
  Company Number: US-BIOGENIDEC-2010BI043873

PATIENT
  Age: 44 Year
  Sex: Female

DRUGS (3)
  1. TYSABRI [Suspect]
     Indication: MULTIPLE SCLEROSIS
     Route: 042
     Dates: start: 20101008
  2. BENADRYL [Concomitant]
     Indication: PREMEDICATION
  3. STEROIDS (NOS) [Concomitant]
     Indication: PREMEDICATION

REACTIONS (1)
  - RASH [None]
